FAERS Safety Report 9404984 (Version 1)
Quarter: 2013Q3

REPORT INFORMATION
  Report Type: Spontaneous
  Country: DE (occurrence: None)
  Receive Date: 20130715
  Receipt Date: 20130715
  Transmission Date: 20140515
  Serious: No
  Sender: FDA-Public Use
  Company Number: 1306DEU005589

PATIENT
  Sex: Female

DRUGS (1)
  1. KEIMAX [Suspect]
     Indication: MIDDLE EAR INFLAMMATION
     Route: 048
     Dates: start: 20130607, end: 20130611

REACTIONS (2)
  - Eyelid oedema [None]
  - Rash [None]
